FAERS Safety Report 5530195-8 (Version None)
Quarter: 2007Q4

REPORT INFORMATION
  Report Type: 
  Country: None (occurrence: None)
  Receive Date: 20071130
  Receipt Date: 20071121
  Transmission Date: 20080405
  Serious: Yes (Hospitalization, Other)
  Sender: FDA-Public Use
  Company Number: US-JNJFOC-20070806242

PATIENT
  Sex: Female
  Weight: 101.15 kg

DRUGS (4)
  1. REMICADE [Suspect]
     Route: 042
  2. REMICADE [Suspect]
     Indication: CROHN'S DISEASE
     Route: 042
  3. IMURAN [Concomitant]
     Indication: CROHN'S DISEASE
  4. ASACOL [Concomitant]

REACTIONS (4)
  - CELLULITIS [None]
  - HERPES ZOSTER [None]
  - METASTASES TO BONE [None]
  - METASTATIC NEOPLASM [None]
